FAERS Safety Report 8364348-0 (Version None)
Quarter: 2012Q2

REPORT INFORMATION
  Report Type: 
  Country: None (occurrence: None)
  Receive Date: 20120516
  Receipt Date: 20120507
  Transmission Date: 20120825
  Serious: Yes (Other)
  Sender: FDA-Public Use
  Company Number: US-ASTRAZENECA-2012SE29502

PATIENT
  Age: 65 Year
  Sex: Female

DRUGS (1)
  1. TOPROL-XL [Suspect]
     Route: 048

REACTIONS (6)
  - NEOPLASM [None]
  - OEDEMA MOUTH [None]
  - DIABETES MELLITUS [None]
  - MALAISE [None]
  - SWOLLEN TONGUE [None]
  - MULTIPLE ALLERGIES [None]
